FAERS Safety Report 18457335 (Version 2)
Quarter: 2020Q4

REPORT INFORMATION
  Report Type: Report from Study
  Country: CA (occurrence: CA)
  Receive Date: 20201030
  Receipt Date: 20201104
  Transmission Date: 20210114
  Serious: Yes (Death)
  Sender: FDA-Public Use
  Company Number: CA-ASTRAZENECA-2020SF02435

PATIENT
  Age: 21877 Day
  Sex: Female

DRUGS (6)
  1. BREO ELLIPTA [Concomitant]
     Active Substance: FLUTICASONE FUROATE\VILANTEROL TRIFENATATE
  2. SPIRIVA [Concomitant]
     Active Substance: TIOTROPIUM BROMIDE MONOHYDRATE
  3. FASENRA [Suspect]
     Active Substance: BENRALIZUMAB
     Indication: ASTHMA
     Dosage: 30.0MG UNKNOWN
     Route: 058
     Dates: start: 20200713
  4. EMTEC [Concomitant]
     Indication: GOUT
  5. VENTOLIN [Concomitant]
     Active Substance: ALBUTEROL SULFATE
  6. GABAPENTIN. [Concomitant]
     Active Substance: GABAPENTIN

REACTIONS (6)
  - Chest pain [Unknown]
  - Metastases to liver [Fatal]
  - Cough [Unknown]
  - Drug ineffective [Unknown]
  - Small cell lung cancer metastatic [Fatal]
  - Dysphonia [Unknown]

NARRATIVE: CASE EVENT DATE: 20200810
